FAERS Safety Report 8322910-5 (Version None)
Quarter: 2012Q2

REPORT INFORMATION
  Report Type: 
  Country: None (occurrence: None)
  Receive Date: 20120430
  Receipt Date: 20120424
  Transmission Date: 20120825
  Serious: No
  Sender: FDA-Public Use
  Company Number: US-PFIZER INC-2012102444

PATIENT
  Sex: Female
  Weight: 91.61 kg

DRUGS (9)
  1. ATENOLOL [Concomitant]
     Indication: HYPERTENSION
     Dosage: 50 MG, UNK
  2. OXYCODONE HYDROCHLORIDE [Suspect]
     Indication: SURGERY
  3. NAPROSYN [Suspect]
     Dosage: UNK
  4. CELEBREX [Concomitant]
     Indication: OSTEITIS
     Dosage: 200 MG, DAILY
  5. OXYCODONE HYDROCHLORIDE [Suspect]
     Indication: CHOLELITHIASIS
     Dosage: UNK
  6. PROTONIX [Concomitant]
     Indication: GASTRITIS
     Dosage: 40 MG, DAILY
     Dates: start: 20110101
  7. NEXIUM [Concomitant]
     Indication: GASTRITIS
     Dosage: UNK
     Dates: end: 20110101
  8. TERIPARATIDE [Suspect]
     Indication: OSTEOPOROSIS
     Dosage: UNK
  9. SYNTHROID [Concomitant]
     Indication: THYROID DISORDER
     Dosage: 200 UG, UNK

REACTIONS (3)
  - PAIN [None]
  - NAUSEA [None]
  - ABDOMINAL PAIN UPPER [None]
